FAERS Safety Report 7196197-3 (Version None)
Quarter: 2010Q4

REPORT INFORMATION
  Report Type: 
  Country: None (occurrence: None)
  Receive Date: 20101223
  Receipt Date: 20101019
  Transmission Date: 20110411
  Serious: No
  Sender: FDA-Public Use
  Company Number: US-AMGEN-USASP2010000814

PATIENT

DRUGS (1)
  1. ENBREL [Suspect]
     Indication: PSORIASIS
     Dates: start: 20090520

REACTIONS (10)
  - HEADACHE [None]
  - JOINT SWELLING [None]
  - LIP SWELLING [None]
  - LYMPHADENOPATHY [None]
  - NECK PAIN [None]
  - OROPHARYNGEAL PAIN [None]
  - PAIN IN JAW [None]
  - PSORIASIS [None]
  - PYREXIA [None]
  - RASH PRURITIC [None]
